FAERS Safety Report 7432390-X (Version None)
Quarter: 2011Q2

REPORT INFORMATION
  Report Type: 
  Country: None (occurrence: None)
  Receive Date: 20110422
  Receipt Date: 20110412
  Transmission Date: 20111010
  Serious: Yes (Other)
  Sender: FDA-Public Use
  Company Number: US-JNJFOC-20110409200

PATIENT
  Age: 77 Year
  Sex: Male
  Weight: 124.74 kg

DRUGS (12)
  1. ZYRTEC [Suspect]
     Indication: SINUS DISORDER
     Route: 048
  2. VITAMIN B-12 [Concomitant]
     Indication: NUTRITIONAL SUPPORT
     Route: 065
  3. ZYRTEC [Suspect]
     Route: 048
  4. NIACIN [Concomitant]
     Indication: BLOOD CHOLESTEROL INCREASED
     Route: 065
  5. FISH OIL [Concomitant]
     Indication: NUTRITIONAL SUPPORT
     Route: 065
  6. ASPIRIN [Concomitant]
     Indication: CARDIAC DISORDER
     Route: 048
  7. METOLAZONE [Concomitant]
     Indication: FLUID RETENTION
     Route: 065
  8. OMEPRAZOLE [Concomitant]
     Indication: DYSPEPSIA
     Route: 065
  9. VITAMIN D [Concomitant]
     Indication: NUTRITIONAL SUPPORT
     Route: 065
  10. ALPHA LIPOIC ACID [Concomitant]
     Indication: NUTRITIONAL SUPPORT
     Route: 065
  11. TORSEMIDE [Concomitant]
     Indication: FLUID RETENTION
     Route: 065
  12. BUSPIRONE HCL [Concomitant]
     Indication: RELAXATION THERAPY
     Route: 065

REACTIONS (3)
  - BEDRIDDEN [None]
  - DIZZINESS [None]
  - FALL [None]
